FAERS Safety Report 8649282 (Version 3)
Quarter: 2013Q2

REPORT INFORMATION
  Report Type: Report from Study
  Country: DE (occurrence: DE)
  Receive Date: 20120705
  Receipt Date: 20130507
  Transmission Date: 20140414
  Serious: Yes (Hospitalization)
  Sender: FDA-Public Use
  Company Number: DE-BAYER-2012-062646

PATIENT
  Age: 55 Year
  Sex: 0
  Weight: 84 kg

DRUGS (1)
  1. SORAFENIB (RAF KINASE INHIBITOR) [Suspect]
     Indication: HEPATOCELLULAR CARCINOMA
     Dosage: DAILY DOSE 400 MG
     Dates: start: 20110721, end: 20110912

REACTIONS (3)
  - Hepatic failure [Recovering/Resolving]
  - Ascites [Recovering/Resolving]
  - Diarrhoea [Recovering/Resolving]
